FAERS Safety Report 7979537-4 (Version None)
Quarter: 2011Q4

REPORT INFORMATION
  Report Type: 
  Country: None (occurrence: None)
  Receive Date: 20111214
  Receipt Date: 20111202
  Transmission Date: 20120403
  Serious: Yes (Hospitalization)
  Sender: FDA-Public Use
  Company Number: FR-VERTEX PHARMACEUTICALS INC.-AE-2011-004785

PATIENT
  Sex: Male

DRUGS (1)
  1. INCIVO (TELAPREVIR) [Suspect]
     Indication: HEPATITIS C
     Route: 048

REACTIONS (2)
  - MALAISE [None]
  - RASH [None]
